FAERS Safety Report 19220363 (Version 1)
Quarter: 2021Q2

REPORT INFORMATION
  Report Type: Spontaneous
  Country: US (occurrence: US)
  Receive Date: 20210506
  Receipt Date: 20210506
  Transmission Date: 20210717
  Serious: No
  Sender: FDA-Public Use
  Company Number: US-EYEPOINT PHARMACEUTICALS, INC.-US-EYP-21-00016

PATIENT
  Age: 23 Year
  Sex: Male

DRUGS (1)
  1. YUTIQ [Suspect]
     Active Substance: FLUOCINOLONE ACETONIDE
     Indication: PRODUCT USED FOR UNKNOWN INDICATION
     Route: 031
     Dates: start: 20201228, end: 20201228

REACTIONS (3)
  - Product dose omission issue [Unknown]
  - Device failure [Unknown]
  - No adverse event [Unknown]

NARRATIVE: CASE EVENT DATE: 20201228
